FAERS Safety Report 4608713-3 (Version None)
Quarter: 2005Q1

REPORT INFORMATION
  Report Type: 
  Country: None (occurrence: None)
  Receive Date: 20050315
  Receipt Date: 20050303
  Transmission Date: 20050727
  Serious: Yes (Death)
  Sender: FDA-Public Use
  Company Number: JP-ROCHE-397281

PATIENT
  Age: 3 Year
  Sex: Male

DRUGS (1)
  1. TAMIFLU [Suspect]
     Route: 065
     Dates: start: 20021227

REACTIONS (3)
  - BRAIN HERNIATION [None]
  - PULMONARY OEDEMA [None]
  - SUDDEN DEATH [None]
